FAERS Safety Report 17605182 (Version 2)
Quarter: 2020Q2

REPORT INFORMATION
  Report Type: Spontaneous
  Country: US (occurrence: US)
  Receive Date: 20200331
  Receipt Date: 20200401
  Transmission Date: 20200713
  Serious: No
  Sender: FDA-Public Use
  Company Number: US-SPARK THERAPEUTICS, INC.-US-SPK-19-00054

PATIENT
  Age: 5 Year
  Sex: Female

DRUGS (3)
  1. TRIAMCINOLONE INJECTION [Suspect]
     Active Substance: TRIAMCINOLONE
  2. LUXTURNA [Suspect]
     Active Substance: VORETIGENE NEPARVOVEC-RZYL
     Indication: LEBER^S CONGENITAL AMAUROSIS
     Dosage: BOTH EYES TREATED WITH ONE WEEK APART
  3. LUXTURNA [Suspect]
     Active Substance: VORETIGENE NEPARVOVEC-RZYL
     Indication: LEBER^S CONGENITAL AMAUROSIS

REACTIONS (1)
  - Ocular hypertension [Unknown]
